FAERS Safety Report 13521981 (Version 4)
Quarter: 2018Q2

REPORT INFORMATION
  Report Type: Spontaneous
  Country: US (occurrence: US)
  Receive Date: 20170508
  Receipt Date: 20180430
  Transmission Date: 20180711
  Serious: Yes (Other)
  Sender: FDA-Public Use
  Company Number: ALCN2017US003164

PATIENT
  Age: 75 Year
  Sex: Female
  Weight: 86.17 kg

DRUGS (28)
  1. BETADINE [Suspect]
     Active Substance: POVIDONE-IODINE
     Indication: PREOPERATIVE CARE
     Dosage: UNK UNK, BID
     Route: 047
     Dates: start: 20170313
  2. ALCAINE [Suspect]
     Active Substance: PROPARACAINE HYDROCHLORIDE
     Indication: PREOPERATIVE CARE
     Dosage: UNK
     Route: 047
     Dates: start: 20170313
  3. LOTEMAX [Concomitant]
     Active Substance: LOTEPREDNOL ETABONATE
     Dosage: UNK UNK, QID
     Route: 047
     Dates: start: 20170314
  4. CYCLOGYL [Suspect]
     Active Substance: CYCLOPENTOLATE HYDROCHLORIDE
     Indication: PREOPERATIVE CARE
     Dosage: UNK UNK, QD
     Route: 047
     Dates: start: 20170313
  5. PAREMYD [Suspect]
     Active Substance: HYDROXYAMPHETAMINE HYDROBROMIDE\TROPICAMIDE
     Indication: PREOPERATIVE CARE
     Dosage: UNK UNK, QD
     Route: 047
     Dates: start: 20170313
  6. LOTEMAX [Concomitant]
     Active Substance: LOTEPREDNOL ETABONATE
     Indication: PREOPERATIVE CARE
     Dosage: UNK UNK, Q2H
     Route: 047
     Dates: start: 20170310, end: 20170312
  7. PREDILONE [Concomitant]
     Dosage: UNK UNK, QID
     Route: 047
     Dates: start: 20170324, end: 20170404
  8. BESIVANCE [Concomitant]
     Active Substance: BESIFLOXACIN
     Indication: PREOPERATIVE CARE
     Dosage: UNK UNK, TID
     Route: 047
     Dates: start: 20170310, end: 20170312
  9. TOBRAMYCIN. [Concomitant]
     Active Substance: TOBRAMYCIN
     Dosage: UNK UNK, BID
     Route: 047
     Dates: start: 20170320, end: 20170324
  10. DUREZOL [Concomitant]
     Active Substance: DIFLUPREDNATE
     Indication: POSTOPERATIVE CARE
     Dosage: UNK UNK, QD
     Route: 047
     Dates: start: 20170404
  11. VANCOMYCIN [Concomitant]
     Active Substance: VANCOMYCIN
     Dosage: UNK UNK, QID
     Route: 065
     Dates: start: 20170316, end: 20170320
  12. SYSTANE (HYPROMELLOSE 2910 (4000 MPA.S)) [Suspect]
     Active Substance: HYPROMELLOSE 2910 (4000 MPA.S)
     Indication: PREOPERATIVE CARE
     Dosage: UNK UNK, QD
     Route: 047
     Dates: start: 20170313
  13. PROLENSA [Concomitant]
     Active Substance: BROMFENAC SODIUM
     Dosage: UNK UNK, QD
     Route: 047
     Dates: start: 20170313
  14. LOTEMAX [Concomitant]
     Active Substance: LOTEPREDNOL ETABONATE
     Dosage: UNK UNK, Q2H
     Route: 047
     Dates: start: 20170313, end: 20170314
  15. CEFTAZIDIME. [Concomitant]
     Active Substance: CEFTAZIDIME
     Indication: POSTOPERATIVE CARE
     Dosage: UNK
     Route: 047
     Dates: start: 20170314
  16. TOBRAMYCIN. [Concomitant]
     Active Substance: TOBRAMYCIN
     Dosage: UNK UNK, QID
     Route: 047
     Dates: start: 20170316, end: 20170320
  17. PREDILONE [Concomitant]
     Indication: POSTOPERATIVE CARE
     Dosage: UNK UNK, QH
     Route: 047
     Dates: start: 20170314, end: 20170316
  18. PREDILONE [Concomitant]
     Dosage: UNK UNK, Q2H
     Route: 047
     Dates: start: 20170316, end: 20170324
  19. BSS [Suspect]
     Active Substance: CALCIUM CHLORIDE\MAGNESIUM CHLORIDE\POTASSIUM CHLORIDE\SODIUM ACETATE\SODIUM CHLORIDE\SODIUM CITRATE
     Indication: EYE IRRIGATION
     Route: 047
  20. BESIVANCE [Concomitant]
     Active Substance: BESIFLOXACIN
     Dosage: UNK UNK, Q2H
     Route: 047
     Dates: start: 20170313, end: 20170314
  21. PROLENSA [Concomitant]
     Active Substance: BROMFENAC SODIUM
     Indication: PREOPERATIVE CARE
     Dosage: UNK UNK, QD
     Route: 047
     Dates: start: 20170310, end: 20170312
  22. VANCOMYCIN [Concomitant]
     Active Substance: VANCOMYCIN
     Indication: POSTOPERATIVE CARE
     Dosage: UNK UNK, Q2H
     Route: 047
     Dates: start: 20170314
  23. VANCOMYCIN [Concomitant]
     Active Substance: VANCOMYCIN
     Dosage: UNK UNK, Q2H
     Route: 065
     Dates: start: 20170314
  24. ATROP [Concomitant]
     Indication: POSTOPERATIVE CARE
     Dosage: UNK UNK, BID
     Route: 047
     Dates: start: 20170314, end: 20170326
  25. ARTIFICIAL TEARS [Concomitant]
     Active Substance: GLYCERIN\HYPROMELLOSES\POLYETHYLENE GLYCOL 400
     Indication: POSTOPERATIVE CARE
     Dosage: UNK
     Route: 047
     Dates: start: 20170313
  26. VANCOMYCIN [Concomitant]
     Active Substance: VANCOMYCIN
     Dosage: UNK UNK, QH
     Route: 065
     Dates: start: 20170314, end: 20170316
  27. VANCOMYCIN [Concomitant]
     Active Substance: VANCOMYCIN
     Dosage: UNK UNK, BID
     Route: 065
     Dates: start: 20170320, end: 20170324
  28. TOBRAMYCIN. [Concomitant]
     Active Substance: TOBRAMYCIN
     Indication: POSTOPERATIVE CARE
     Dosage: UNK UNK, QH
     Route: 047
     Dates: start: 20170314, end: 20170316

REACTIONS (6)
  - Eye inflammation [Recovered/Resolved]
  - Visual impairment [Recovered/Resolved]
  - Anterior chamber fibrin [Recovered/Resolved]
  - Endophthalmitis [Recovered/Resolved]
  - Corneal oedema [Recovered/Resolved]
  - Hypopyon [Recovered/Resolved]

NARRATIVE: CASE EVENT DATE: 20170314
